FAERS Safety Report 9612008 (Version 2)
Quarter: 2013Q4

REPORT INFORMATION
  Report Type: Spontaneous
  Country: DK (occurrence: GB)
  Receive Date: 20131010
  Receipt Date: 20131114
  Transmission Date: 20140711
  Serious: Yes (Other)
  Sender: FDA-Public Use
  Company Number: GB-FRI-1000049869

PATIENT
  Sex: Female

DRUGS (2)
  1. ESCITALOPRAM [Suspect]
     Dosage: 5 MG
  2. CIALIS [Suspect]
     Indication: WRONG DRUG ADMINISTERED
     Dosage: 5 MG
     Route: 048

REACTIONS (7)
  - Product name confusion [Recovered/Resolved]
  - Drug dispensing error [Recovered/Resolved]
  - Multiple sclerosis relapse [Not Recovered/Not Resolved]
  - Abdominal pain [Unknown]
  - Chest discomfort [Unknown]
  - Dyspepsia [Recovered/Resolved]
  - Hypoaesthesia [Unknown]
